FAERS Safety Report 17495274 (Version 1)
Quarter: 2020Q1

REPORT INFORMATION
  Report Type: Spontaneous
  Country: US (occurrence: US)
  Receive Date: 20200303
  Receipt Date: 20200303
  Transmission Date: 20200409
  Serious: Yes (Other)
  Sender: FDA-Public Use
  Company Number: None

PATIENT
  Sex: Male

DRUGS (1)
  1. ROSUVASTATIN CALCIUM 10 MG [Suspect]
     Active Substance: ROSUVASTATIN CALCIUM

REACTIONS (2)
  - Drug intolerance [None]
  - Muscle spasms [None]
